FAERS Safety Report 8716269 (Version 3)
Quarter: 2013Q1

REPORT INFORMATION
  Report Type: Spontaneous
  Country: CN (occurrence: CN)
  Receive Date: 20120810
  Receipt Date: 20130117
  Transmission Date: 20140127
  Serious: Yes (Other)
  Sender: FDA-Public Use
  Company Number: CN-009507513-1208CHN001604

PATIENT
  Age: 78 Year
  Sex: Male

DRUGS (3)
  1. TIENAM [Suspect]
     Indication: LUNG INFECTION
     Dosage: 0.5 G, Q8H
  2. CEFTIZOXIME [Concomitant]
     Indication: CEREBRAL INFARCTION
     Dosage: 2.25 MG, BID
     Route: 041
  3. CEFTIZOXIME [Concomitant]
     Indication: LUNG INFECTION

REACTIONS (1)
  - Epilepsy [Recovered/Resolved]
